FAERS Safety Report 6009891-4 (Version None)
Quarter: 2008Q4

REPORT INFORMATION
  Report Type: 
  Country: None (occurrence: None)
  Receive Date: 20081217
  Receipt Date: 20081208
  Transmission Date: 20090506
  Serious: Yes (Other)
  Sender: FDA-Public Use
  Company Number: US-JNJCH-2008056931

PATIENT
  Age: 68 Year
  Sex: Female
  Weight: 113.4 kg

DRUGS (2)
  1. ROLAIDS EXTRA STRENGTH FRESHMINT [Suspect]
     Indication: DYSPEPSIA
     Dosage: TEXT:1 TABLET ONCE IN THE EVENING
     Route: 048
     Dates: start: 20081203, end: 20081203
  2. ANTIHYPERTENSIVES [Concomitant]
     Indication: HYPERTENSION
     Dosage: TEXT:1 TABLET ONCE DAILY
     Route: 048

REACTIONS (4)
  - DYSGEUSIA [None]
  - ORAL DISCOMFORT [None]
  - PRODUCT QUALITY ISSUE [None]
  - PRODUCT TAMPERING [None]
